FAERS Safety Report 7564120-5 (Version None)
Quarter: 2011Q2

REPORT INFORMATION
  Report Type: 
  Country: None (occurrence: None)
  Receive Date: 20110622
  Receipt Date: 20110617
  Transmission Date: 20111010
  Serious: Yes (Hospitalization)
  Sender: FDA-Public Use
  Company Number: IT-PFIZER INC-2009192195

PATIENT
  Age: 75 Year
  Sex: Male
  Weight: 65 kg

DRUGS (9)
  1. EPLERENONE [Suspect]
     Dosage: 50 MG, DAILY
     Route: 048
     Dates: start: 20070521, end: 20090216
  2. OMEPRAZOLE [Concomitant]
     Dosage: UNK
     Route: 048
     Dates: start: 20061001
  3. RAMIPRIL [Concomitant]
     Dosage: 1.25 MG, DAILY
     Route: 048
     Dates: start: 20070322
  4. LEVOTHYROXINE [Concomitant]
     Dosage: UNK
     Route: 048
     Dates: start: 19970101
  5. EPLERENONE [Suspect]
     Indication: CARDIAC FAILURE
     Dosage: 25 MG, DAILY
     Route: 048
     Dates: start: 20070424, end: 20070520
  6. AMIODARONE HCL [Suspect]
     Dosage: TDD 125 MG
     Route: 048
     Dates: start: 19961001
  7. BISOPROLOL [Suspect]
     Dosage: 1.25 MG, DAILY
     Route: 048
     Dates: start: 20070423
  8. FUROSEMIDE [Concomitant]
     Dosage: UNK
     Route: 048
     Dates: start: 20070322
  9. ACENOCOUMAROL [Concomitant]
     Dosage: UNK
     Route: 048
     Dates: start: 19960917

REACTIONS (1)
  - SYNCOPE [None]
